FAERS Safety Report 5706916-8 (Version None)
Quarter: 2008Q2

REPORT INFORMATION
  Report Type: 
  Country: None (occurrence: None)
  Receive Date: 20080416
  Receipt Date: 20080404
  Transmission Date: 20081010
  Serious: Yes (Hospitalization, Other)
  Sender: FDA-Public Use
  Company Number: US-AMGEN-STX273053

PATIENT
  Sex: Female

DRUGS (2)
  1. ENBREL [Suspect]
     Indication: RHEUMATOID ARTHRITIS
     Route: 058
     Dates: start: 19990501
  2. METHOTREXATE [Concomitant]
     Route: 058
     Dates: start: 19990101

REACTIONS (3)
  - HIP ARTHROPLASTY [None]
  - IMPAIRED HEALING [None]
  - SINUSITIS [None]
